FAERS Safety Report 8268651-4 (Version None)
Quarter: 2012Q2

REPORT INFORMATION
  Report Type: 
  Country: None (occurrence: None)
  Receive Date: 20120409
  Receipt Date: 20120329
  Transmission Date: 20120825
  Serious: Yes (Hospitalization)
  Sender: FDA-Public Use
  Company Number: US-ELI_LILLY_AND_COMPANY-US201201005163

PATIENT
  Sex: Female

DRUGS (12)
  1. PERCOCET [Concomitant]
     Dosage: UNK
  2. HYZAAR [Concomitant]
  3. JANUVIA [Concomitant]
  4. FORTEO [Suspect]
     Indication: OSTEOPOROSIS POSTMENOPAUSAL
     Dosage: 20 UG, QD
     Route: 058
     Dates: start: 20110801
  5. LANTUS [Concomitant]
  6. PREDNISONE [Concomitant]
  7. IRON [Concomitant]
  8. ASPIRIN [Concomitant]
  9. SIMVASTATIN [Concomitant]
  10. ASCORBIC ACID [Concomitant]
  11. M.V.I. [Concomitant]
  12. PRILOSEC [Concomitant]

REACTIONS (2)
  - SPINAL FUSION SURGERY [None]
  - AUTOLOGOUS BONE MARROW TRANSPLANTATION THERAPY [None]
